FAERS Safety Report 17467561 (Version 1)
Quarter: 2020Q1

REPORT INFORMATION
  Report Type: Spontaneous
  Country: US (occurrence: US)
  Receive Date: 20200227
  Receipt Date: 20200227
  Transmission Date: 20200409
  Serious: No
  Sender: FDA-Public Use
  Company Number: US-BEH-2020113263

PATIENT
  Age: 33 Year
  Sex: Female

DRUGS (20)
  1. PROPANOLOL [PROPRANOLOL] [Concomitant]
     Active Substance: PROPRANOLOL HYDROCHLORIDE
  2. SYEDA [Concomitant]
     Active Substance: DROSPIRENONE\ETHINYL ESTRADIOL
  3. BUTALBITAL/APAP [Concomitant]
     Active Substance: ACETAMINOPHEN\BUTALBITAL
  4. BACLOFEN. [Concomitant]
     Active Substance: BACLOFEN
  5. METOPROLOL SUCCINATE. [Concomitant]
     Active Substance: METOPROLOL SUCCINATE
  6. CLONAZEPAM. [Concomitant]
     Active Substance: CLONAZEPAM
  7. FLUOXETINE [Concomitant]
     Active Substance: FLUOXETINE HYDROCHLORIDE
  8. ZOLPIDEM [Concomitant]
     Active Substance: ZOLPIDEM TARTRATE
  9. HIZENTRA [Suspect]
     Active Substance: HUMAN IMMUNOGLOBULIN G
     Indication: IMMUNODEFICIENCY COMMON VARIABLE
     Dosage: 8 GRAM, QW
     Route: 058
     Dates: start: 20171019
  10. ALPRAZOLAM. [Concomitant]
     Active Substance: ALPRAZOLAM
  11. EFFEXOR [Concomitant]
     Active Substance: VENLAFAXINE HYDROCHLORIDE
  12. DOXYCYCLIN [DOXYCYCLINE HYDROCHLORIDE] [Concomitant]
  13. GABAPENTIN. [Concomitant]
     Active Substance: GABAPENTIN
  14. KETOROLAC [Concomitant]
     Active Substance: KETOROLAC TROMETHAMINE
  15. METHOCARBAMOL. [Concomitant]
     Active Substance: METHOCARBAMOL
  16. METOPROLOL TARTRATE. [Concomitant]
     Active Substance: METOPROLOL TARTRATE
  17. TIZANIDINE. [Concomitant]
     Active Substance: TIZANIDINE
  18. AMITRIPTYLIN [Concomitant]
     Active Substance: AMITRIPTYLINE
  19. BUTORPHANOL [Concomitant]
     Active Substance: BUTORPHANOL
  20. ESZOPICLONE. [Concomitant]
     Active Substance: ESZOPICLONE

REACTIONS (5)
  - Influenza like illness [Not Recovered/Not Resolved]
  - Product dose omission [Not Recovered/Not Resolved]
  - No adverse event [Unknown]
  - Insurance issue [Unknown]
  - Headache [Not Recovered/Not Resolved]
